FAERS Safety Report 18929304 (Version 2)
Quarter: 2022Q1

REPORT INFORMATION
  Report Type: Spontaneous
  Country: US (occurrence: None)
  Receive Date: 20210223
  Receipt Date: 20220302
  Transmission Date: 20220423
  Serious: No
  Sender: FDA-Public Use
  Company Number: US-ROCHE-2610832

PATIENT
  Sex: Female
  Weight: 46.762 kg

DRUGS (3)
  1. NUTROPIN AQ [Suspect]
     Active Substance: SOMATROPIN
     Indication: Congenital anomaly
     Route: 058
     Dates: start: 20200303
  2. NUTROPIN AQ [Suspect]
     Active Substance: SOMATROPIN
     Dosage: 10 MG/ 2 ML
     Route: 058
     Dates: start: 20200227
  3. NUTROPIN AQ [Suspect]
     Active Substance: SOMATROPIN
     Route: 058
     Dates: start: 20210303

REACTIONS (3)
  - Off label use [Unknown]
  - Product dose omission in error [Unknown]
  - No adverse event [Unknown]
